FAERS Safety Report 5573193-0 (Version None)
Quarter: 2007Q4

REPORT INFORMATION
  Report Type: 
  Country: None (occurrence: None)
  Receive Date: 20071224
  Receipt Date: 20071213
  Transmission Date: 20080405
  Serious: Yes (Death)
  Sender: FDA-Public Use
  Company Number: GB-SANOFI-SYNTHELABO-A01200713656

PATIENT
  Sex: Female

DRUGS (2)
  1. ASPIRIN [Concomitant]
     Indication: ACUTE CORONARY SYNDROME
     Route: 065
  2. PLAVIX [Suspect]
     Indication: ACUTE CORONARY SYNDROME
     Route: 048

REACTIONS (4)
  - ANAEMIA [None]
  - ATRIAL FIBRILLATION [None]
  - GASTRITIS ATROPHIC [None]
  - LEFT VENTRICULAR FAILURE [None]
